FAERS Safety Report 11948414 (Version 1)
Quarter: 2016Q1

REPORT INFORMATION
  Report Type: Spontaneous
  Country: TR (occurrence: TR)
  Receive Date: 20160125
  Receipt Date: 20160125
  Transmission Date: 20160526
  Serious: Yes (Death, Hospitalization)
  Sender: FDA-Public Use
  Company Number: TR-MYLANLABS-2016M1002689

PATIENT

DRUGS (1)
  1. HYDROCHLOROTHIAZIDE/LISINOPRIL [Suspect]
     Active Substance: HYDROCHLOROTHIAZIDE\LISINOPRIL
     Indication: HYPERTENSION
     Dosage: LISINOPRIL/HYDROCHLOROTHIAZIDE 20 MG/12.5 MG ONCE DAILY
     Route: 065

REACTIONS (3)
  - Cardiac arrest [Fatal]
  - Respiratory distress [Unknown]
  - Angioedema [Fatal]
